FAERS Safety Report 9401843 (Version 1)
Quarter: 2013Q3

REPORT INFORMATION
  Report Type: Spontaneous
  Country: US (occurrence: US)
  Receive Date: 20130716
  Receipt Date: 20130716
  Transmission Date: 20140515
  Serious: Yes (Other)
  Sender: FDA-Public Use
  Company Number: US-JNJFOC-20130701537

PATIENT
  Age: 52 Year
  Sex: Male

DRUGS (1)
  1. REMICADE [Suspect]
     Indication: CROHN^S DISEASE
     Dosage: 3RD DOSE
     Route: 042

REACTIONS (5)
  - Jejunal perforation [Unknown]
  - Streptococcal sepsis [Unknown]
  - Colitis ulcerative [Unknown]
  - Wound [Unknown]
  - Peritonitis [Unknown]
